FAERS Safety Report 6557619-1 (Version None)
Quarter: 2010Q1

REPORT INFORMATION
  Report Type: 
  Country: None (occurrence: None)
  Receive Date: 20100129
  Receipt Date: 20100121
  Transmission Date: 20100710
  Serious: Yes (Other)
  Sender: FDA-Public Use
  Company Number: BE-MILLENNIUM PHARMACEUTICALS, INC.-2010-00919

PATIENT

DRUGS (1)
  1. VELCADE [Suspect]

REACTIONS (1)
  - RESPIRATORY DISORDER [None]
